FAERS Safety Report 10213447 (Version 1)
Quarter: 2014Q2

REPORT INFORMATION
  Report Type: Spontaneous
  Country: IT (occurrence: None)
  Receive Date: 20140529
  Receipt Date: 20140529
  Transmission Date: 20141212
  Serious: Yes (Other)
  Sender: FDA-Public Use
  Company Number: FK201401861

PATIENT
  Age: 39 Year
  Sex: Female

DRUGS (2)
  1. CEFTRIAXON [Suspect]
     Indication: BRONCHITIS
     Route: 030
     Dates: start: 20140502, end: 20140502
  2. PANTORC [Concomitant]

REACTIONS (5)
  - Malaise [None]
  - Vomiting [None]
  - Generalised erythema [None]
  - Pruritus generalised [None]
  - Pruritus generalised [None]
